FAERS Safety Report 7443547-6 (Version None)
Quarter: 2011Q2

REPORT INFORMATION
  Report Type: 
  Country: None (occurrence: None)
  Receive Date: 20110428
  Receipt Date: 20110418
  Transmission Date: 20111010
  Serious: Yes (Other)
  Sender: FDA-Public Use
  Company Number: US-GENENTECH-305774

PATIENT

DRUGS (3)
  1. TEMSIROLIMUS [Suspect]
     Indication: MANTLE CELL LYMPHOMA
     Dosage: 25 MG, 1/WEEK
     Route: 042
  2. RITUXIMAB [Suspect]
     Indication: MANTLE CELL LYMPHOMA
     Dosage: 375 MG/M2, 1/WEEK
     Route: 042
  3. RITUXIMAB [Suspect]
     Dosage: 375 MG/M2, UNK
     Route: 042

REACTIONS (29)
  - SEXUAL DYSFUNCTION [None]
  - RASH [None]
  - HYPERTRIGLYCERIDAEMIA [None]
  - HYPOCALCAEMIA [None]
  - FEBRILE NEUTROPENIA [None]
  - PNEUMONIA [None]
  - FATIGUE [None]
  - PNEUMONITIS [None]
  - LYMPHOPENIA [None]
  - BLOOD CREATININE INCREASED [None]
  - DYSPNOEA [None]
  - HYPERCHOLESTEROLAEMIA [None]
  - HYPOKALAEMIA [None]
  - MUSCULAR WEAKNESS [None]
  - PRURITUS [None]
  - ANAEMIA [None]
  - DIARRHOEA [None]
  - OEDEMA [None]
  - PERIPHERAL SENSORY NEUROPATHY [None]
  - ISCHAEMIA [None]
  - INFECTION [None]
  - THROMBOCYTOPENIA [None]
  - HYPERGLYCAEMIA [None]
  - NAIL DISORDER [None]
  - NAUSEA [None]
  - HAEMORRHAGE [None]
  - NEUTROPENIA [None]
  - LEUKOCYTOSIS [None]
  - WEIGHT DECREASED [None]
